FAERS Safety Report 9284497 (Version 1)
Quarter: 2013Q2

REPORT INFORMATION
  Report Type: Spontaneous
  Country: US (occurrence: US)
  Receive Date: 20130510
  Receipt Date: 20130510
  Transmission Date: 20140414
  Serious: Yes (Other)
  Sender: FDA-Public Use
  Company Number: US-US-EMD SERONO, INC.-7083471

PATIENT
  Age: 53 Year
  Sex: Female
  Weight: 54 kg

DRUGS (4)
  1. REBIF [Suspect]
     Indication: MULTIPLE SCLEROSIS
     Route: 058
     Dates: start: 20050815, end: 20110727
  2. REBIF [Suspect]
     Dates: end: 20110828
  3. LEXAPRO [Concomitant]
     Indication: DEPRESSION
     Dates: start: 200505
  4. LEXAPRO [Concomitant]
     Indication: ANXIETY

REACTIONS (2)
  - Mastitis [Recovered/Resolved]
  - Influenza like illness [Not Recovered/Not Resolved]
